FAERS Safety Report 21816852 (Version 1)
Quarter: 2023Q1

REPORT INFORMATION
  Report Type: Spontaneous
  Country: US (occurrence: US)
  Receive Date: 20230104
  Receipt Date: 20230104
  Transmission Date: 20230418
  Serious: No
  Sender: FDA-Public Use
  Company Number: US-PFIZER INC-202300002247

PATIENT
  Age: 61 Year
  Sex: Female

DRUGS (2)
  1. PAXLOVID [Interacting]
     Active Substance: NIRMATRELVIR\RITONAVIR
     Dosage: UNK
  2. SEROQUEL [Interacting]
     Active Substance: QUETIAPINE FUMARATE
     Indication: Sleep disorder
     Dosage: 50 MG, 1X/DAY (AT NIGHT)

REACTIONS (2)
  - Drug interaction [Not Recovered/Not Resolved]
  - Malaise [Not Recovered/Not Resolved]
